FAERS Safety Report 15387138 (Version 1)
Quarter: 2018Q3

REPORT INFORMATION
  Report Type: Report from Study
  Country: US (occurrence: US)
  Receive Date: 20180914
  Receipt Date: 20180914
  Transmission Date: 20181010
  Serious: Yes (Death, Hospitalization, Other)
  Sender: FDA-Public Use
  Company Number: US-SAKK-2018SA254707AA

PATIENT
  Age: 83 Year
  Sex: Male

DRUGS (1)
  1. INSULIN GLARGINE [Suspect]
     Active Substance: INSULIN GLARGINE
     Indication: TYPE 2 DIABETES MELLITUS
     Dosage: UNK UNK, QD
     Route: 058

REACTIONS (6)
  - Renal disorder [Unknown]
  - Blood glucose increased [Unknown]
  - Cardiac disorder [Unknown]
  - Eye disorder [Unknown]
  - Death [Fatal]
  - Heart valve replacement [Unknown]

NARRATIVE: CASE EVENT DATE: 20180319
